FAERS Safety Report 4707625-4 (Version None)
Quarter: 2005Q3

REPORT INFORMATION
  Report Type: 
  Country: None (occurrence: None)
  Receive Date: 20050706
  Receipt Date: 20050627
  Transmission Date: 20060218
  Serious: Yes (Disabling)
  Sender: FDA-Public Use
  Company Number: AU-MERCK-0506AUS00243

PATIENT
  Age: 65 Year
  Sex: Female

DRUGS (2)
  1. FOSAMAX [Suspect]
     Indication: OSTEOPOROSIS
     Route: 048
     Dates: start: 20020401, end: 20031201
  2. CALCIUM CARBONATE [Concomitant]
     Route: 065

REACTIONS (4)
  - DYSPEPSIA [None]
  - GENERAL SYMPTOM [None]
  - MACULAR HOLE [None]
  - NAUSEA [None]
